FAERS Safety Report 5714178-0 (Version None)
Quarter: 2008Q2

REPORT INFORMATION
  Report Type: 
  Country: None (occurrence: None)
  Receive Date: 20080423
  Receipt Date: 20071001
  Transmission Date: 20081010
  Serious: No
  Sender: FDA-Public Use
  Company Number: US-KINGPHARMUSA00001-K200701269

PATIENT

DRUGS (2)
  1. SKELAXIN [Suspect]
     Indication: BACK PAIN
     Dosage: 800 MG, QD
     Route: 048
     Dates: start: 20070901, end: 20070901
  2. PAIN KILLER NON-OPIOID [Concomitant]
     Indication: BACK PAIN
     Dates: start: 20070901, end: 20070901

REACTIONS (5)
  - DIZZINESS [None]
  - NAUSEA [None]
  - URINARY RETENTION [None]
  - VISUAL DISTURBANCE [None]
  - VOMITING [None]
